FAERS Safety Report 8116714-6 (Version None)
Quarter: 2012Q1

REPORT INFORMATION
  Report Type: 
  Country: None (occurrence: None)
  Receive Date: 20120206
  Receipt Date: 20120130
  Transmission Date: 20120608
  Serious: Yes (Other)
  Sender: FDA-Public Use
  Company Number: PHHY2012IN008939

PATIENT
  Sex: Female

DRUGS (1)
  1. OXYTOCIN [Suspect]
     Route: 042

REACTIONS (3)
  - FLUID OVERLOAD [None]
  - MATERNAL EXPOSURE DURING PREGNANCY [None]
  - PULMONARY OEDEMA [None]
